FAERS Safety Report 8018859-8 (Version None)
Quarter: 2012Q1

REPORT INFORMATION
  Report Type: 
  Country: None (occurrence: None)
  Receive Date: 20120103
  Receipt Date: 20111226
  Transmission Date: 20120608
  Serious: Yes (Death)
  Sender: FDA-Public Use
  Company Number: CN-BAYER-2011-123116

PATIENT
  Age: 46 Year
  Sex: Male

DRUGS (2)
  1. ASPIRIN [Suspect]
     Dosage: 0.9 G, ONCE
     Route: 048
     Dates: start: 20110511, end: 20110511
  2. PHENOBARBITAL TAB [Suspect]
     Dosage: 0.1 G, ONCE
     Route: 030
     Dates: start: 20110511, end: 20110511

REACTIONS (1)
  - DEATH [None]
